FAERS Safety Report 17002561 (Version 2)
Quarter: 2019Q4

REPORT INFORMATION
  Report Type: Spontaneous
  Country: US (occurrence: US)
  Receive Date: 20191107
  Receipt Date: 20191204
  Transmission Date: 20200122
  Serious: Yes (Life-Threatening, Hospitalization, Other)
  Sender: FDA-Public Use
  Company Number: US-LUPIN PHARMACEUTICALS INC.-2019-07185

PATIENT
  Age: 36 Year
  Sex: Female

DRUGS (2)
  1. FOSPHENYTOIN [Concomitant]
     Active Substance: FOSPHENYTOIN
     Indication: PRODUCT USED FOR UNKNOWN INDICATION
     Dosage: 2 MILLILITER, TID (100MG PE/2 ML)
     Route: 042
  2. PHENYTOIN SODIUM. [Suspect]
     Active Substance: PHENYTOIN SODIUM
     Indication: PRODUCT USED FOR UNKNOWN INDICATION
     Dosage: 200 MILLIGRAM, TID
     Route: 048

REACTIONS (4)
  - Bradycardia [Recovering/Resolving]
  - Toxicity to various agents [Recovered/Resolved]
  - Respiratory failure [Not Recovered/Not Resolved]
  - Ileus [Recovered/Resolved]
